FAERS Safety Report 6805414-8 (Version None)
Quarter: 2010Q2

REPORT INFORMATION
  Report Type: 
  Country: None (occurrence: None)
  Receive Date: 20100628
  Receipt Date: 20071218
  Transmission Date: 20101027
  Serious: No
  Sender: FDA-Public Use
  Company Number: US-PFIZER INC-2007093503

PATIENT
  Sex: Female

DRUGS (2)
  1. PROCARDIA [Suspect]
     Indication: HYPERTENSION
     Dates: start: 20050101
  2. LISINOPRIL [Suspect]
     Indication: HYPERTENSION
     Dates: start: 20050101

REACTIONS (3)
  - BLOOD CREATININE INCREASED [None]
  - COUGH [None]
  - RASH [None]
